FAERS Safety Report 13115612 (Version 1)
Quarter: 2017Q1

REPORT INFORMATION
  Report Type: Report from Study
  Country: US (occurrence: US)
  Receive Date: 20170114
  Receipt Date: 20170114
  Transmission Date: 20170428
  Serious: No
  Sender: FDA-Public Use
  Company Number: PHEH2017US001056

PATIENT
  Age: 40 Year
  Sex: Male

DRUGS (1)
  1. AFINITOR [Suspect]
     Active Substance: EVEROLIMUS
     Indication: BENIGN RENAL NEOPLASM
     Dosage: 10 MG, QD
     Route: 048
     Dates: start: 20160407

REACTIONS (6)
  - Limb discomfort [Unknown]
  - Weight increased [Unknown]
  - Balance disorder [Unknown]
  - Gait disturbance [Unknown]
  - Peripheral swelling [Unknown]
  - Blood pressure increased [Unknown]

NARRATIVE: CASE EVENT DATE: 20170106
